FAERS Safety Report 5955684-3 (Version None)
Quarter: 2008Q4

REPORT INFORMATION
  Report Type: 
  Country: None (occurrence: None)
  Receive Date: 20081112
  Receipt Date: 20081104
  Transmission Date: 20090506
  Serious: Yes (Hospitalization)
  Sender: FDA-Public Use
  Company Number: GXKR2008DE10432

PATIENT
  Sex: Male

DRUGS (4)
  1. DIAZEPAM [Suspect]
     Dosage: 125 MG, OT, ORAL
     Route: 048
  2. ABILIFY [Suspect]
     Indication: SCHIZOPHRENIA, PARANOID TYPE
     Dates: start: 20080522, end: 20080531
  3. AKINETON [Concomitant]
  4. RISPERDAL [Concomitant]

REACTIONS (1)
  - HEPATITIS ACUTE [None]
